FAERS Safety Report 11714508 (Version 3)
Quarter: 2015Q4

REPORT INFORMATION
  Report Type: Spontaneous
  Country: CH (occurrence: CH)
  Receive Date: 20151109
  Receipt Date: 20151208
  Transmission Date: 20160304
  Serious: Yes (Other)
  Sender: FDA-Public Use
  Company Number: CH-PFIZER INC-2015375076

PATIENT
  Age: 76 Year
  Sex: Male

DRUGS (1)
  1. LYRICA [Suspect]
     Active Substance: PREGABALIN
     Dosage: UNK
     Route: 048
     Dates: start: 201410

REACTIONS (2)
  - Dermatitis [Not Recovered/Not Resolved]
  - Systemic lupus erythematosus rash [Recovering/Resolving]

NARRATIVE: CASE EVENT DATE: 201507
